FAERS Safety Report 9169744 (Version 2)
Quarter: 2013Q1

REPORT INFORMATION
  Report Type: Spontaneous
  Country: US (occurrence: US)
  Receive Date: 20130318
  Receipt Date: 20130324
  Transmission Date: 20140127
  Serious: Yes (Other)
  Sender: FDA-Public Use
  Company Number: CHPA2013US004479

PATIENT
  Age: 71 Year
  Sex: Male

DRUGS (3)
  1. TRANSDERM SCOP [Suspect]
     Indication: MOTION SICKNESS
     Dosage: 1 DF, EVERY 4 DAYS
     Route: 062
     Dates: end: 20130309
  2. TRANSDERM SCOP [Suspect]
     Indication: DIZZINESS
     Dosage: UNK, UNK
     Route: 062
  3. EXCEDRIN MIGRAINE [Suspect]
     Indication: HEADACHE
     Dosage: UNK, UNK

REACTIONS (5)
  - Parkinson^s disease [Not Recovered/Not Resolved]
  - Somnolence [Recovered/Resolved]
  - Headache [Recovering/Resolving]
  - Dizziness [Recovering/Resolving]
  - Nausea [Recovering/Resolving]
